FAERS Safety Report 9283920 (Version 1)
Quarter: 2013Q2

REPORT INFORMATION
  Report Type: Spontaneous
  Country: US (occurrence: US)
  Receive Date: 20130510
  Receipt Date: 20130510
  Transmission Date: 20140414
  Serious: Yes (Other)
  Sender: FDA-Public Use
  Company Number: US-B.I. PHARMACEUTICALS,INC./RIDGEFIELD-2013-BI-12266BP

PATIENT
  Sex: Female

DRUGS (7)
  1. TRADJENTA [Suspect]
     Route: 048
     Dates: start: 2012
  2. ASPIRIN [Suspect]
  3. LEVOXYL [Suspect]
  4. FUROSEMIDE [Suspect]
  5. SIMVASTATIN [Suspect]
  6. COREG [Suspect]
  7. GLUCOVANCE [Suspect]

REACTIONS (4)
  - Breast cancer [Unknown]
  - Palpitations [Unknown]
  - Ejection fraction decreased [Unknown]
  - Drug interaction [Unknown]
